FAERS Safety Report 5126201-5 (Version None)
Quarter: 2006Q3

REPORT INFORMATION
  Report Type: 
  Country: None (occurrence: None)
  Receive Date: 20060824
  Receipt Date: 20060503
  Transmission Date: 20061208
  Serious: Yes (Other)
  Sender: FDA-Public Use
  Company Number: WAES 0605USA00714

PATIENT
  Age: 49 Year
  Sex: Female

DRUGS (9)
  1. VYTORIN [Suspect]
     Indication: HYPERLIPIDAEMIA
     Dosage: PO
     Route: 048
     Dates: start: 20041101, end: 20060209
  2. ALLEGRA [Concomitant]
  3. CREON [Concomitant]
  4. LIBRAX [Concomitant]
  5. LOTRIMIN [Concomitant]
  6. NASONEX [Concomitant]
  7. PRILOSEC [Concomitant]
  8. SYNTHROID [Concomitant]
  9. COLCHICINE [Concomitant]

REACTIONS (2)
  - MYALGIA [None]
  - PANCREATITIS [None]
